FAERS Safety Report 5081065-3 (Version None)
Quarter: 2006Q3

REPORT INFORMATION
  Report Type: 
  Country: None (occurrence: None)
  Receive Date: 20060720
  Receipt Date: 20051220
  Transmission Date: 20061208
  Serious: Yes (Hospitalization, Other)
  Sender: FDA-Public Use
  Company Number: 2005172825

PATIENT
  Sex: Female
  Weight: 72.5755 kg

DRUGS (5)
  1. CELEBREX [Suspect]
     Indication: BACK DISORDER
     Dosage: SEE IMAGE
     Route: 048
     Dates: end: 20030101
  2. DARVOCET-N (DETROPROPOXYPHENE NAPSILATE, PARACETAMOL) [Concomitant]
  3. DILAUDID [Concomitant]
  4. PRENATAL VITAMINS (ASCORBIC ACID, BIOTIN,MINERALS NOS, NOCITINIC ACID, [Concomitant]
  5. PREVACID [Concomitant]

REACTIONS (2)
  - CEREBROVASCULAR ACCIDENT [None]
  - DRUG INEFFECTIVE [None]
